FAERS Safety Report 25816072 (Version 1)
Quarter: 2025Q3

REPORT INFORMATION
  Report Type: Spontaneous
  Country: KE (occurrence: KE)
  Receive Date: 20250918
  Receipt Date: 20250918
  Transmission Date: 20251020
  Serious: Yes (Other)
  Sender: BRISTOL-MYERS SQUIBB COMPANY
  Company Number: KE-BRISTOL-MYERS SQUIBB COMPANY-2025-126112

PATIENT
  Age: 46 Year
  Sex: Female

DRUGS (5)
  1. OPDIVO [Suspect]
     Active Substance: NIVOLUMAB
     Indication: Gastric cancer
  2. OPDIVO [Suspect]
     Active Substance: NIVOLUMAB
  3. OPDIVO [Suspect]
     Active Substance: NIVOLUMAB
  4. OPDIVO [Suspect]
     Active Substance: NIVOLUMAB
  5. OPDIVO [Suspect]
     Active Substance: NIVOLUMAB

REACTIONS (2)
  - Immunodeficiency [Unknown]
  - Off label use [Unknown]
